FAERS Safety Report 7424374-2 (Version None)
Quarter: 2011Q2

REPORT INFORMATION
  Report Type: 
  Country: None (occurrence: None)
  Receive Date: 20110411
  Receipt Date: 20110408
  Transmission Date: 20111010
  Serious: Yes (Other)
  Sender: FDA-Public Use
  Company Number: 1713747-2011-00007

PATIENT
  Sex: Male
  Weight: 122 kg

DRUGS (1)
  1. STAY SAFE 2.5% DEX LML 3L 4 PK [Suspect]
     Indication: RENAL FAILURE CHRONIC
     Dosage: INTRAPERITONEAL
     Route: 033
     Dates: start: 20110210

REACTIONS (7)
  - EXPOSURE TO CONTAMINATED DEVICE [None]
  - DEVICE EXTENSION DAMAGE [None]
  - PERITONITIS [None]
  - STRESS [None]
  - STAPHYLOCOCCUS TEST POSITIVE [None]
  - PRODUCT STERILITY LACKING [None]
  - UNEVALUABLE EVENT [None]
